FAERS Safety Report 7231012-0 (Version None)
Quarter: 2011Q1

REPORT INFORMATION
  Report Type: 
  Country: None (occurrence: None)
  Receive Date: 20110118
  Receipt Date: 20110110
  Transmission Date: 20110831
  Serious: Yes (Hospitalization)
  Sender: FDA-Public Use
  Company Number: FR-BRISTOL-MYERS SQUIBB COMPANY-15482110

PATIENT
  Age: 79 Year
  Sex: Female

DRUGS (3)
  1. OROCAL D3 [Suspect]
  2. COUMADIN [Suspect]
     Dates: start: 20050401, end: 20101125
  3. DEDROGYL [Suspect]

REACTIONS (3)
  - RECTAL HAEMORRHAGE [None]
  - DIVERTICULUM INTESTINAL [None]
  - HYPERCALCAEMIA [None]
